FAERS Safety Report 14261527 (Version 1)
Quarter: 2017Q4

REPORT INFORMATION
  Report Type: Report from Study
  Country: CO (occurrence: CO)
  Receive Date: 20171208
  Receipt Date: 20171208
  Transmission Date: 20180321
  Serious: Yes (Life-Threatening, Hospitalization)
  Sender: FDA-Public Use
  Company Number: CO-ROCHE-2034325

PATIENT
  Age: 67 Year
  Sex: Female
  Weight: 94 kg

DRUGS (1)
  1. XOLAIR [Suspect]
     Active Substance: OMALIZUMAB
     Indication: ASTHMA
     Route: 058
     Dates: start: 20150901

REACTIONS (6)
  - Choking [Unknown]
  - Chest discomfort [Unknown]
  - Productive cough [Unknown]
  - Dyspnoea [Unknown]
  - Pulmonary pain [Unknown]
  - Chest pain [Unknown]

NARRATIVE: CASE EVENT DATE: 20170801
